FAERS Safety Report 4661960-7 (Version None)
Quarter: 2005Q2

REPORT INFORMATION
  Report Type: 
  Country: None (occurrence: None)
  Receive Date: 20050511
  Receipt Date: 20050511
  Transmission Date: 20051028
  Serious: Yes (Hospitalization)
  Sender: FDA-Public Use
  Company Number: None

PATIENT
  Age: 66 Year
  Sex: Male

DRUGS (2)
  1. RITUXIMAB [Suspect]
     Indication: NEOPLASM MALIGNANT
     Dosage: 500 MG ONCE
     Dates: start: 20050120
  2. FLUDARABINE [Suspect]
     Indication: NEOPLASM MALIGNANT
     Dosage: 45 MG DAILY [5 DOSES]
     Dates: start: 20050118, end: 20050123

REACTIONS (1)
  - NEUTROPENIA [None]
